FAERS Safety Report 9373997 (Version 1)
Quarter: 2013Q2

REPORT INFORMATION
  Report Type: Spontaneous
  Country: US (occurrence: None)
  Receive Date: 20130627
  Receipt Date: 20130627
  Transmission Date: 20140414
  Serious: Yes (Other)
  Sender: FDA-Public Use
  Company Number: None

PATIENT
  Sex: Female

DRUGS (1)
  1. GENERIC REQUIP [Suspect]
     Indication: PARKINSON^S DISEASE
     Dosage: PRIOR TO 2012

REACTIONS (2)
  - Nausea [None]
  - Drug ineffective [None]
